FAERS Safety Report 15714496 (Version 15)
Quarter: 2023Q1

REPORT INFORMATION
  Report Type: Spontaneous
  Country: US (occurrence: US)
  Receive Date: 20181212
  Receipt Date: 20230210
  Transmission Date: 20230417
  Serious: Yes (Other)
  Sender: FDA-Public Use
  Company Number: US-PFIZER INC-2018508814

PATIENT
  Age: 71 Year
  Sex: Female

DRUGS (1)
  1. XELJANZ XR [Suspect]
     Active Substance: TOFACITINIB CITRATE
     Indication: Rheumatoid arthritis
     Dosage: 11 MG, 1X/DAY
     Dates: start: 201805

REACTIONS (7)
  - Pneumonia [Unknown]
  - Visual impairment [Not Recovered/Not Resolved]
  - Lung disorder [Unknown]
  - Fall [Unknown]
  - Fungal foot infection [Unknown]
  - Condition aggravated [Unknown]
  - Urinary tract infection [Unknown]

NARRATIVE: CASE EVENT DATE: 20211201
